FAERS Safety Report 23956695 (Version 1)
Quarter: 2024Q2

REPORT INFORMATION
  Report Type: Spontaneous
  Country: US (occurrence: None)
  Receive Date: 20240608
  Receipt Date: 20240608
  Transmission Date: 20240716
  Serious: Yes (Hospitalization)
  Sender: FDA-Public Use
  Company Number: None

PATIENT
  Age: 76 Year
  Sex: Male
  Weight: 71 kg

DRUGS (1)
  1. ADALIMUMAB-BWWD [Suspect]
     Active Substance: ADALIMUMAB-BWWD
     Indication: Crohn^s disease
     Dosage: 40 MG SQ
     Route: 058
     Dates: start: 20240311, end: 20240510

REACTIONS (1)
  - Tachypnoea [None]

NARRATIVE: CASE EVENT DATE: 20240509
